FAERS Safety Report 20151683 (Version 5)
Quarter: 2022Q1

REPORT INFORMATION
  Report Type: Report from Study
  Country: US (occurrence: None)
  Receive Date: 20211206
  Receipt Date: 20220302
  Transmission Date: 20220423
  Serious: Yes (Life-Threatening, Hospitalization, Other)
  Sender: FDA-Public Use
  Company Number: US-ROCHE-2966960

PATIENT
  Age: 77 Year
  Sex: Male
  Weight: 135.7 kg

DRUGS (3)
  1. ATEZOLIZUMAB [Suspect]
     Active Substance: ATEZOLIZUMAB
     Indication: Prostate cancer metastatic
     Dosage: LAST DOSE: 26/OCT/2021 AND LAST DATE PRIOR TO SAE  WAS 16/NOV/2021
     Route: 041
     Dates: start: 20210713
  2. ABIRATERONE [Suspect]
     Active Substance: ABIRATERONE
     Indication: Prostate cancer metastatic
     Dosage: LAST DOSE: 26/OCT/2021 AND LAST DATE PRIOR TO SAE  WAS 16/NOV/2021?2 TABLETS DAILY
     Route: 048
     Dates: start: 20210805
  3. DEGARELIX [Concomitant]
     Active Substance: DEGARELIX
     Indication: Prostate cancer metastatic
     Route: 065
     Dates: start: 20210719

REACTIONS (8)
  - Large intestine perforation [Not Recovered/Not Resolved]
  - Wound dehiscence [Not Recovered/Not Resolved]
  - Sepsis [Recovered/Resolved]
  - Acute kidney injury [Recovered/Resolved]
  - Respiratory failure [Recovered/Resolved]
  - Spinal fracture [Not Recovered/Not Resolved]
  - Skin ulcer [Recovered/Resolved]
  - Hypernatraemia [Recovered/Resolved]

NARRATIVE: CASE EVENT DATE: 20211123
